FAERS Safety Report 8802668 (Version 2)
Quarter: 2012Q4

REPORT INFORMATION
  Report Type: 
  Country: US (occurrence: US)
  Receive Date: 20120921
  Receipt Date: 20121004
  Transmission Date: 20130627
  Serious: Yes (Other)
  Sender: FDA-Public Use
  Company Number: US-PFIZER INC-2012232864

PATIENT
  Age: 52 Year
  Sex: Female
  Weight: 69.84 kg

DRUGS (4)
  1. NEURONTIN [Suspect]
     Indication: NEUROPATHY PERIPHERAL
     Dosage: 600 mg, 4x/day
     Route: 048
  2. NEURONTIN [Suspect]
     Dosage: UNK
     Route: 048
     Dates: end: 20120915
  3. TRILIPIX [Concomitant]
     Dosage: UNK
  4. VENTOLIN [Concomitant]
     Dosage: UNK

REACTIONS (3)
  - Blood glucose increased [Unknown]
  - Anxiety [Not Recovered/Not Resolved]
  - Mood altered [Not Recovered/Not Resolved]
